FAERS Safety Report 8170551-5 (Version None)
Quarter: 2012Q1

REPORT INFORMATION
  Report Type: 
  Country: None (occurrence: None)
  Receive Date: 20120228
  Receipt Date: 20120224
  Transmission Date: 20120608
  Serious: Yes (Other)
  Sender: FDA-Public Use
  Company Number: JP-PFIZER INC-2012046079

PATIENT
  Age: 72 Year
  Sex: Female

DRUGS (5)
  1. CARVEDILOL [Suspect]
     Dosage: 7.5 MG DAILY
     Route: 048
     Dates: start: 20110101
  2. ALENDRONATE SODIUM [Concomitant]
     Dosage: 3 DF, DAILY
     Route: 048
     Dates: start: 20110101
  3. CONIEL [Concomitant]
     Dosage: 4 MG, DAILY
  4. ALDACTONE [Suspect]
     Dosage: 25 MG, 3X/DAY
     Route: 048
     Dates: start: 20110101
  5. CADUET [Suspect]
     Dosage: [AMLODIPINE BESILATE 5 MG] / [ATORVASTATIN CALCIUM 10 MG]
     Route: 048
     Dates: start: 20110101

REACTIONS (1)
  - HYPOKALAEMIA [None]
